FAERS Safety Report 10200478 (Version 1)
Quarter: 2014Q2

REPORT INFORMATION
  Report Type: Spontaneous
  Country: ZA (occurrence: ZA)
  Receive Date: 20140528
  Receipt Date: 20140528
  Transmission Date: 20141212
  Serious: Yes (Death)
  Sender: FDA-Public Use
  Company Number: ZA-MERCK-1405ZAF013360

PATIENT
  Sex: Male

DRUGS (1)
  1. CANCIDAS 50MG [Suspect]

REACTIONS (1)
  - Death [Fatal]
